FAERS Safety Report 15762696 (Version 2)
Quarter: 2019Q4

REPORT INFORMATION
  Report Type: Report from Study
  Country: US (occurrence: US)
  Receive Date: 20181226
  Receipt Date: 20191214
  Transmission Date: 20200122
  Serious: No
  Sender: FDA-Public Use
  Company Number: PHEH2018US054537

PATIENT
  Sex: Female

DRUGS (1)
  1. TYKERB [Suspect]
     Active Substance: LAPATINIB DITOSYLATE
     Indication: BREAST CANCER
     Dosage: 750 MG, QD
     Route: 048
     Dates: start: 20161011

REACTIONS (3)
  - Diarrhoea [Unknown]
  - Rash [Unknown]
  - Insomnia [Unknown]
